FAERS Safety Report 15561289 (Version 1)
Quarter: 2018Q4

REPORT INFORMATION
  Report Type: Spontaneous
  Country: HR (occurrence: HR)
  Receive Date: 20181029
  Receipt Date: 20181029
  Transmission Date: 20190205
  Serious: Yes (Congenital Anomaly)
  Sender: FDA-Public Use
  Company Number: HR-ACELLA PHARMACEUTICALS, LLC-2058171

PATIENT
  Sex: Male

DRUGS (1)
  1. GABAPENTIN. [Suspect]
     Active Substance: GABAPENTIN
     Indication: FOETAL EXPOSURE DURING PREGNANCY

REACTIONS (3)
  - Psychomotor skills impaired [Unknown]
  - Atrial septal defect [Unknown]
  - Myoclonic epilepsy [Unknown]
